FAERS Safety Report 25954232 (Version 1)
Quarter: 2025Q4

REPORT INFORMATION
  Report Type: Spontaneous
  Country: US (occurrence: US)
  Receive Date: 20251023
  Receipt Date: 20251023
  Transmission Date: 20260118
  Serious: No
  Sender: MERCK SHARP & DOHME LLC
  Company Number: US-009507513-2334236

PATIENT
  Sex: Female
  Weight: 70.7 kg

DRUGS (23)
  1. SOTATERCEPT-CSRK [Suspect]
     Active Substance: SOTATERCEPT-CSRK
     Indication: Product used for unknown indication
  2. SOTATERCEPT-CSRK [Suspect]
     Active Substance: SOTATERCEPT-CSRK
  3. SOTATERCEPT-CSRK [Suspect]
     Active Substance: SOTATERCEPT-CSRK
  4. SOTATERCEPT-CSRK [Suspect]
     Active Substance: SOTATERCEPT-CSRK
  5. ORENITRAM [Suspect]
     Active Substance: TREPROSTINIL
     Indication: Pulmonary arterial hypertension
     Route: 048
  6. ORENITRAM [Suspect]
     Active Substance: TREPROSTINIL
     Indication: Pulmonary arterial hypertension
     Route: 048
  7. ORENITRAM [Suspect]
     Active Substance: TREPROSTINIL
     Indication: Pulmonary arterial hypertension
     Route: 048
     Dates: start: 20240522
  8. AMITRIPTYLINE HYDROCHLORIDE [Concomitant]
     Active Substance: AMITRIPTYLINE HYDROCHLORIDE
  9. FISH OIL [Concomitant]
     Active Substance: FISH OIL
  10. CLONIDINE HYDROCHLORIDE [Concomitant]
     Active Substance: CLONIDINE HYDROCHLORIDE
  11. VITAMIN B12 [Concomitant]
     Active Substance: CYANOCOBALAMIN
  12. NIACIN [Concomitant]
     Active Substance: NIACIN
  13. ACETAMINOPHEN\HYDROCODONE [Concomitant]
     Active Substance: ACETAMINOPHEN\HYDROCODONE
  14. LECITHIN [Concomitant]
     Active Substance: LECITHIN
  15. KETAMINE [Concomitant]
     Active Substance: KETAMINE
  16. SIMVASTATIN [Concomitant]
     Active Substance: SIMVASTATIN
  17. TYLENOL EXTRA STRENGTH [Concomitant]
     Active Substance: ACETAMINOPHEN
  18. POLOXAMER [Concomitant]
     Active Substance: POLOXAMER
  19. LIDOCAINE [Concomitant]
     Active Substance: LIDOCAINE
  20. GABAPENTIN [Concomitant]
     Active Substance: GABAPENTIN
  21. LEVOTHYROXINE [Concomitant]
     Active Substance: LEVOTHYROXINE
  22. LOSARTAN POTASSIUM [Concomitant]
     Active Substance: LOSARTAN POTASSIUM
  23. TREPROSTINIL [Suspect]
     Active Substance: TREPROSTINIL
     Indication: Pulmonary arterial hypertension
     Route: 048

REACTIONS (2)
  - Injection site bruising [Unknown]
  - Injection site haemorrhage [Unknown]
